FAERS Safety Report 12746124 (Version 1)
Quarter: 2016Q3

REPORT INFORMATION
  Report Type: Other
  Country: NP (occurrence: NP)
  Receive Date: 20160915
  Receipt Date: 20160915
  Transmission Date: 20161109
  Serious: Yes (Life-Threatening, Hospitalization)
  Sender: FDA-Public Use
  Company Number: NP-ENDO PHARMACEUTICALS INC-2016-005564

PATIENT
  Age: 23 Year
  Sex: Female

DRUGS (1)
  1. AMLODIPINE BESYLATE TABLETS 5MG [Suspect]
     Active Substance: AMLODIPINE BESYLATE
     Indication: PRODUCT USED FOR UNKNOWN INDICATION
     Route: 048

REACTIONS (5)
  - Suicide attempt [Recovered/Resolved]
  - Intentional overdose [Recovered/Resolved]
  - Non-cardiogenic pulmonary oedema [Recovered/Resolved]
  - Pleural effusion [Recovered/Resolved]
  - Hypotension [Recovered/Resolved]
